FAERS Safety Report 8419049-7 (Version None)
Quarter: 2012Q2

REPORT INFORMATION
  Report Type: 
  Country: None (occurrence: None)
  Receive Date: 20120607
  Receipt Date: 20120604
  Transmission Date: 20120825
  Serious: Yes (Other)
  Sender: FDA-Public Use
  Company Number: PHHY2012NL047662

PATIENT
  Sex: Female

DRUGS (1)
  1. SANDOSTATIN LAR [Suspect]
     Indication: CARCINOID SYNDROME
     Dosage: 30 MG, UNK

REACTIONS (5)
  - SPINAL COMPRESSION FRACTURE [None]
  - ASTHENIA [None]
  - VITAMIN B12 DEFICIENCY [None]
  - OSTEOPOROSIS [None]
  - BACK PAIN [None]
